FAERS Safety Report 4437064-5 (Version None)
Quarter: 2004Q3

REPORT INFORMATION
  Report Type: 
  Country: None (occurrence: None)
  Receive Date: 20040830
  Receipt Date: 20040821
  Transmission Date: 20050211
  Serious: Yes (Life-Threatening, Hospitalization, Disabling)
  Sender: FDA-Public Use
  Company Number: GB-GLAXOSMITHKLINE-B0343205A

PATIENT
  Age: 33 Year
  Sex: Female
  Weight: 20 kg

DRUGS (4)
  1. LITHIUM [Suspect]
     Indication: BIPOLAR DISORDER
     Dosage: 800MG PER DAY
     Route: 048
     Dates: start: 20010101, end: 20040805
  2. VENLAFAXINE HCL [Suspect]
     Indication: BIPOLAR DISORDER
     Dosage: 150MG PER DAY
     Route: 048
     Dates: start: 20030901, end: 20040805
  3. RISPERIDONE [Suspect]
     Indication: BIPOLAR DISORDER
     Dosage: 3MG PER DAY
     Route: 048
     Dates: start: 20020101, end: 20040805
  4. DIANETTE [Suspect]
     Route: 048
     Dates: start: 20040101, end: 20040805

REACTIONS (2)
  - PANCREATITIS [None]
  - RENAL TUBULAR NECROSIS [None]
